FAERS Safety Report 15865628 (Version 2)
Quarter: 2019Q3

REPORT INFORMATION
  Report Type: Report from Study
  Country: ES (occurrence: ES)
  Receive Date: 20190125
  Receipt Date: 20190725
  Transmission Date: 20191004
  Serious: Yes (Other)
  Sender: FDA-Public Use
  Company Number: ES-ROCHE-661834

PATIENT

DRUGS (6)
  1. VINCRISTINE [Suspect]
     Active Substance: VINCRISTINE
     Indication: B-CELL LYMPHOMA
     Route: 042
  2. INTERFERON ALFA-2B [Suspect]
     Active Substance: INTERFERON ALFA-2B
     Indication: B-CELL LYMPHOMA
     Dosage: DOSE: 3 MU/M2 THRICE PER WEEK FOR 12 WEEKS
     Route: 058
  3. CYCLOPHOSPHAMIDE. [Suspect]
     Active Substance: CYCLOPHOSPHAMIDE
     Indication: B-CELL LYMPHOMA
     Route: 048
  4. FILGRASTIM [Concomitant]
     Active Substance: FILGRASTIM
     Dosage: FOR 5 DAYS FROM D6 OF EACH CYCLE
     Route: 065
  5. PREDNISONE. [Suspect]
     Active Substance: PREDNISONE
     Indication: B-CELL LYMPHOMA
     Route: 065
  6. RITUXIMAB. [Suspect]
     Active Substance: RITUXIMAB
     Indication: B-CELL LYMPHOMA
     Route: 042

REACTIONS (16)
  - Gastroenteritis [Unknown]
  - Urinary tract infection [Unknown]
  - Tonsillitis [Unknown]
  - Upper respiratory tract infection [Unknown]
  - Pneumonia [Unknown]
  - Neutropenia [Unknown]
  - Thrombocytopenia [Unknown]
  - Diabetes mellitus [Unknown]
  - Febrile neutropenia [Unknown]
  - Neuropathy peripheral [Unknown]
  - Infection [Unknown]
  - Bacteraemia [Unknown]
  - Bronchitis [Unknown]
  - Sepsis [Unknown]
  - Pharyngitis [Unknown]
  - Lymphopenia [Unknown]
